FAERS Safety Report 7622420-4 (Version None)
Quarter: 2011Q3

REPORT INFORMATION
  Report Type: 
  Country: None (occurrence: None)
  Receive Date: 20110718
  Receipt Date: 20110718
  Transmission Date: 20111222
  Serious: Yes (Other)
  Sender: FDA-Public Use
  Company Number: None

PATIENT
  Age: 37 Year
  Sex: Female
  Weight: 88.2 kg

DRUGS (1)
  1. PROPOFOL [Suspect]
     Indication: HYSTERECTOMY
     Dosage: 200MG ONCE IV
     Route: 042
     Dates: start: 20110715, end: 20110715

REACTIONS (2)
  - PRODUCT QUALITY ISSUE [None]
  - DRUG INEFFECTIVE [None]
